FAERS Safety Report 9186763 (Version 1)
Quarter: 2012Q4

REPORT INFORMATION
  Report Type: 
  Country: US (occurrence: US)
  Receive Date: 20121102
  Receipt Date: 20121102
  Transmission Date: 20130627
  Serious: No
  Sender: FDA-Public Use
  Company Number: US-PFIZER INC-2012267089

PATIENT
  Sex: Female

DRUGS (2)
  1. PREMARIN VAGINAL CREAM [Suspect]
     Indication: VAGINAL ITCHING
     Dosage: 1 g, UNK
     Route: 067
  2. PREMARIN VAGINAL CREAM [Suspect]
     Indication: DRYNESS VAGINAL

REACTIONS (3)
  - Drug ineffective [Unknown]
  - Product quality issue [Unknown]
  - Vaginal erosion [Unknown]
